FAERS Safety Report 14925153 (Version 1)
Quarter: 2018Q2

REPORT INFORMATION
  Report Type: Report from Study
  Country: CA (occurrence: CA)
  Receive Date: 20180522
  Receipt Date: 20180522
  Transmission Date: 20180711
  Serious: Yes (Hospitalization)
  Sender: FDA-Public Use
  Company Number: CA-JNJFOC-20180521975

PATIENT
  Age: 70 Year
  Sex: Male

DRUGS (1)
  1. STELARA [Suspect]
     Active Substance: USTEKINUMAB
     Indication: CROHN^S DISEASE
     Dosage: STRENGTH = 90 MG
     Route: 058
     Dates: start: 20170128

REACTIONS (5)
  - Thrombophlebitis [Unknown]
  - Dementia Alzheimer^s type [Unknown]
  - Off label use [Unknown]
  - Enterostomy [Unknown]
  - Product use issue [Unknown]

NARRATIVE: CASE EVENT DATE: 20170128
